FAERS Safety Report 15018843 (Version 3)
Quarter: 2018Q3

REPORT INFORMATION
  Report Type: Spontaneous
  Country: US (occurrence: US)
  Receive Date: 20180616
  Receipt Date: 20180919
  Transmission Date: 20181010
  Serious: Yes (Death, Other)
  Sender: FDA-Public Use
  Company Number: US-JNJFOC-20180541927

PATIENT
  Age: 84 Year
  Sex: Male
  Weight: 103.42 kg

DRUGS (15)
  1. NIACIN. [Concomitant]
     Active Substance: NIACIN
     Route: 048
  2. CALCIUM CARBONATE. [Concomitant]
     Active Substance: CALCIUM CARBONATE
     Route: 048
  3. CARVEDILOL. [Concomitant]
     Active Substance: CARVEDILOL
     Dosage: WITH FOOD
     Route: 048
  4. ASPIRIN. [Concomitant]
     Active Substance: ASPIRIN
     Route: 048
  5. LUPRON [Concomitant]
     Active Substance: LEUPROLIDE ACETATE
     Route: 030
  6. XGEVA [Concomitant]
     Active Substance: DENOSUMAB
     Dosage: INJECT INTO THE UPPER ARM, UPPER THIGH OR ABDOMEN
     Route: 058
  7. XTANDI [Concomitant]
     Active Substance: ENZALUTAMIDE
     Route: 065
     Dates: start: 201708
  8. FISH OIL [Concomitant]
     Active Substance: FISH OIL
     Route: 048
  9. NITROGLYCERIN. [Concomitant]
     Active Substance: NITROGLYCERIN
     Indication: CHEST PAIN
     Dosage: UNTIL RESPONSE DO NOT EXCEED 3 DOSES PER EVENT
     Route: 060
  10. ZYTIGA [Suspect]
     Active Substance: ABIRATERONE ACETATE
     Indication: HORMONE-REFRACTORY PROSTATE CANCER
     Dosage: EVERY MORNING
     Route: 048
     Dates: start: 20160907, end: 20180305
  11. PREDNISONE. [Concomitant]
     Active Substance: PREDNISONE
     Dosage: WITH FOOD OR MILK
     Route: 048
  12. METFORMIN [Concomitant]
     Active Substance: METFORMIN HYDROCHLORIDE
     Route: 048
  13. LISINOPRIL. [Concomitant]
     Active Substance: LISINOPRIL
     Route: 048
  14. PIOGLITAZONE. [Concomitant]
     Active Substance: PIOGLITAZONE
     Route: 048
  15. FUROSEMIDE. [Concomitant]
     Active Substance: FUROSEMIDE
     Route: 048

REACTIONS (3)
  - Prostate cancer metastatic [Unknown]
  - Death [Fatal]
  - Osteopenia [Unknown]

NARRATIVE: CASE EVENT DATE: 20180614
